FAERS Safety Report 6107226-X (Version None)
Quarter: 2009Q1

REPORT INFORMATION
  Report Type: 
  Country: None (occurrence: None)
  Receive Date: 20090305
  Receipt Date: 20090305
  Transmission Date: 20090719
  Serious: Yes (Life-Threatening, Disabling)
  Sender: FDA-Public Use
  Company Number: None

PATIENT
  Age: 65 Year
  Sex: Male
  Weight: 79.3795 kg

DRUGS (1)
  1. PROHANCE [Suspect]
     Indication: NUCLEAR MAGNETIC RESONANCE IMAGING
     Dosage: ONE TIME, IV RT HAND
     Dates: start: 20081103

REACTIONS (24)
  - ARTHRALGIA [None]
  - BACK PAIN [None]
  - BLOOD PRESSURE INCREASED [None]
  - CHONDROPATHY [None]
  - CONNECTIVE TISSUE DISORDER [None]
  - CONTUSION [None]
  - DERMATITIS [None]
  - ILL-DEFINED DISORDER [None]
  - JOINT DESTRUCTION [None]
  - MICTURITION URGENCY [None]
  - MUSCULAR WEAKNESS [None]
  - MUSCULOSKELETAL PAIN [None]
  - MUSCULOSKELETAL STIFFNESS [None]
  - ONYCHALGIA [None]
  - PAIN IN EXTREMITY [None]
  - QUALITY OF LIFE DECREASED [None]
  - RASH MACULO-PAPULAR [None]
  - SKIN DISORDER [None]
  - SOFT TISSUE DISORDER [None]
  - SWELLING FACE [None]
  - TOOTHACHE [None]
  - URINARY INCONTINENCE [None]
  - VEIN DISORDER [None]
  - VISUAL IMPAIRMENT [None]
